FAERS Safety Report 4479582-X (Version None)
Quarter: 2004Q4

REPORT INFORMATION
  Report Type: 
  Country: None (occurrence: None)
  Receive Date: 20041015
  Receipt Date: 20041004
  Transmission Date: 20050328
  Serious: No
  Sender: FDA-Public Use
  Company Number: 2004UW20798

PATIENT
  Age: 56 Year
  Sex: Male

DRUGS (4)
  1. LOSEC [Suspect]
  2. SUSTIVA [Suspect]
  3. VIDEX [Suspect]
  4. VIRACEPT [Suspect]
     Dosage: 1500 MG QD PO
     Route: 048

REACTIONS (6)
  - BRONCHITIS [None]
  - FUNGAL INFECTION [None]
  - OEDEMA GENITAL [None]
  - PNEUMONIA [None]
  - SINUSITIS [None]
  - TONGUE DISCOLOURATION [None]
